FAERS Safety Report 9192250 (Version 1)
Quarter: 2013Q1

REPORT INFORMATION
  Report Type: Report from Study
  Country: US (occurrence: US)
  Receive Date: 20130327
  Receipt Date: 20130327
  Transmission Date: 20140127
  Serious: Yes (Other)
  Sender: FDA-Public Use
  Company Number: US-JNJFOC-20130313804

PATIENT
  Sex: Female

DRUGS (3)
  1. REMICADE [Suspect]
     Indication: CROHN^S DISEASE
     Dosage: 5 VIALS
     Route: 042
  2. SOLUCORTEF [Concomitant]
     Route: 065
  3. BENADRYL [Concomitant]
     Route: 065

REACTIONS (2)
  - Crohn^s disease [Unknown]
  - Exposure during pregnancy [Not Recovered/Not Resolved]
